FAERS Safety Report 6230822-6 (Version None)
Quarter: 2009Q2

REPORT INFORMATION
  Report Type: 
  Country: None (occurrence: None)
  Receive Date: 20090616
  Receipt Date: 20090603
  Transmission Date: 20091009
  Serious: Yes (Hospitalization, Other)
  Sender: FDA-Public Use
  Company Number: GB-PFIZER INC-2007107979

PATIENT
  Age: 25 Year

DRUGS (3)
  1. CHAMPIX [Suspect]
     Indication: SMOKING CESSATION THERAPY
     Dosage: 1 MG, 2X/DAY
     Route: 048
     Dates: start: 20071121, end: 20071212
  2. REBOXETINE [Concomitant]
     Route: 048
  3. QUETIAPINE FUMARATE [Concomitant]

REACTIONS (7)
  - ABNORMAL DREAMS [None]
  - DEPRESSION [None]
  - NAUSEA [None]
  - OVERDOSE [None]
  - RASH [None]
  - SUICIDAL IDEATION [None]
  - SUICIDE ATTEMPT [None]
